FAERS Safety Report 15033855 (Version 4)
Quarter: 2018Q4

REPORT INFORMATION
  Report Type: Report from Study
  Country: US (occurrence: US)
  Receive Date: 20180619
  Receipt Date: 20181010
  Transmission Date: 20190204
  Serious: Yes (Hospitalization)
  Sender: FDA-Public Use
  Company Number: US-ROCHE-2142326

PATIENT
  Sex: Female

DRUGS (4)
  1. VITAMIN B6 [Concomitant]
     Active Substance: PYRIDOXINE HYDROCHLORIDE
     Route: 065
  2. ESBRIET [Suspect]
     Active Substance: PIRFENIDONE
     Indication: IDIOPATHIC PULMONARY FIBROSIS
     Route: 048
  3. VITAMIN D3 [Concomitant]
     Active Substance: CHOLECALCIFEROL
     Route: 065
  4. VITAMIN B12 [Concomitant]
     Active Substance: CYANOCOBALAMIN
     Route: 065

REACTIONS (8)
  - Gait disturbance [Unknown]
  - Dyspnoea [Unknown]
  - Asthenia [Unknown]
  - Limb injury [Not Recovered/Not Resolved]
  - Productive cough [Unknown]
  - Thrombosis [Unknown]
  - Scar [Unknown]
  - Localised infection [Unknown]
